FAERS Safety Report 13490372 (Version 4)
Quarter: 2017Q3

REPORT INFORMATION
  Report Type: Spontaneous
  Country: JP (occurrence: JP)
  Receive Date: 20170427
  Receipt Date: 20170928
  Transmission Date: 20171127
  Serious: Yes (Hospitalization)
  Sender: FDA-Public Use
  Company Number: JP-AMGEN-JPNSP2017064205

PATIENT
  Age: 54 Year
  Sex: Female
  Weight: 47 kg

DRUGS (12)
  1. EMEND [Concomitant]
     Active Substance: APREPITANT
     Indication: PROPHYLAXIS OF NAUSEA AND VOMITING
     Dosage: UNK, QD
     Route: 048
     Dates: start: 20170328, end: 20170330
  2. G-LASTA [Suspect]
     Active Substance: PEGFILGRASTIM
     Indication: COLONY STIMULATING FACTOR PROPHYLAXIS
     Dosage: 3.6 MG, QD
     Route: 058
     Dates: start: 20170331, end: 20170331
  3. ETIZOLAM [Concomitant]
     Active Substance: ETIZOLAM
     Indication: INSOMNIA
     Dosage: 0.5 MG, QD
     Route: 048
     Dates: start: 20170328
  4. DEXART [Concomitant]
     Active Substance: DEXAMETHASONE SODIUM PHOSPHATE
     Indication: BREAST CANCER
     Dosage: 9.9 MG, QD
     Route: 042
     Dates: start: 20170328, end: 20170328
  5. ISOTONIC SODIUM CHLORIDE SOLUTION [Concomitant]
     Active Substance: SODIUM CHLORIDE
     Indication: BREAST CANCER
     Dosage: 350 ML, QD
     Route: 042
     Dates: start: 20170328, end: 20170328
  6. ENDOXAN                            /00021101/ [Concomitant]
     Active Substance: CYCLOPHOSPHAMIDE
     Indication: BREAST CANCER
     Dosage: 720 MG, QD
     Route: 041
     Dates: start: 20170328, end: 20170328
  7. REBAMIPIDE [Concomitant]
     Active Substance: REBAMIPIDE
     Indication: PAIN
     Dosage: 100 MG, TID
     Route: 048
     Dates: start: 20170328
  8. EPIRUBICIN HYDROCHLORIDE. [Concomitant]
     Active Substance: EPIRUBICIN HYDROCHLORIDE
     Indication: BREAST CANCER
     Dosage: 144 MG, QD
     Route: 041
     Dates: start: 20170328, end: 20170328
  9. LOXOPROFEN [Concomitant]
     Active Substance: LOXOPROFEN
     Indication: PAIN
     Dosage: 60 MG, TID
     Route: 048
     Dates: start: 20170328, end: 201705
  10. ALOXI [Concomitant]
     Active Substance: PALONOSETRON HYDROCHLORIDE
     Indication: BREAST CANCER
     Dosage: 0.75 MG, QD
     Route: 042
     Dates: start: 20170328, end: 20170328
  11. 5-FU                               /00098801/ [Concomitant]
     Active Substance: FLUOROURACIL
     Indication: BREAST CANCER
     Dosage: 500 MG/M2, UNK
     Route: 041
     Dates: start: 20170328, end: 20170328
  12. CYCLOPHOSPHAMIDE. [Concomitant]
     Active Substance: CYCLOPHOSPHAMIDE
     Indication: BREAST CANCER
     Dosage: 500 MG/M2, UNK
     Route: 041
     Dates: start: 20170328, end: 20170328

REACTIONS (1)
  - Temporal arteritis [Not Recovered/Not Resolved]

NARRATIVE: CASE EVENT DATE: 20170407
